FAERS Safety Report 13555412 (Version 1)
Quarter: 2017Q2

REPORT INFORMATION
  Report Type: Spontaneous
  Country: US (occurrence: US)
  Receive Date: 20170517
  Receipt Date: 20170517
  Transmission Date: 20170830
  Serious: Yes (Death, Other)
  Sender: FDA-Public Use
  Company Number: US-APOPHARMA USA, INC.-2017AP012256

PATIENT
  Age: 67 Year
  Sex: Male

DRUGS (1)
  1. ALKERAN [Suspect]
     Active Substance: MELPHALAN
     Indication: PLASMA CELL MYELOMA
     Dosage: 4 MG, QD
     Route: 048
     Dates: start: 196606, end: 196812

REACTIONS (4)
  - Pancytopenia [Unknown]
  - Acute myelomonocytic leukaemia [Fatal]
  - Mouth haemorrhage [Unknown]
  - Epistaxis [Unknown]
